FAERS Safety Report 4518588-9 (Version None)
Quarter: 2004Q4

REPORT INFORMATION
  Report Type: 
  Country: None (occurrence: None)
  Receive Date: 20041203
  Receipt Date: 20041129
  Transmission Date: 20050328
  Serious: Yes (Disabling)
  Sender: FDA-Public Use
  Company Number: US-MERCK-0411USA04139

PATIENT
  Age: 88 Year
  Sex: Female

DRUGS (4)
  1. VYTORIN [Suspect]
     Indication: HYPERCHOLESTEROLAEMIA
     Route: 048
     Dates: start: 20040801
  2. AGGRENOX [Concomitant]
     Route: 065
  3. ATENOLOL [Concomitant]
     Route: 065
  4. DIAZIDE [Concomitant]
     Route: 065

REACTIONS (3)
  - ABASIA [None]
  - MUSCLE SPASMS [None]
  - MUSCULOSKELETAL STIFFNESS [None]
